FAERS Safety Report 21422652 (Version 7)
Quarter: 2023Q2

REPORT INFORMATION
  Report Type: Spontaneous
  Country: US (occurrence: US)
  Receive Date: 20221007
  Receipt Date: 20230526
  Transmission Date: 20230721
  Serious: Yes (Other)
  Sender: FDA-Public Use
  Company Number: US-PFIZER INC-PV202200078044

PATIENT
  Age: 55 Year
  Sex: Female

DRUGS (1)
  1. XELJANZ XR [Suspect]
     Active Substance: TOFACITINIB CITRATE
     Dosage: 11 MG
     Dates: start: 20220801, end: 202305

REACTIONS (19)
  - Ear infection [Not Recovered/Not Resolved]
  - Therapeutic response delayed [Unknown]
  - Product dose omission issue [Unknown]
  - Ear pain [Unknown]
  - Lymphadenopathy [Unknown]
  - Pain [Unknown]
  - Pain in extremity [Unknown]
  - Joint injury [Unknown]
  - Gastrooesophageal reflux disease [Recovered/Resolved]
  - Abdominal discomfort [Unknown]
  - Malaise [Unknown]
  - Rash macular [Recovering/Resolving]
  - Erythema [Recovering/Resolving]
  - Breast pain [Unknown]
  - Tongue ulceration [Unknown]
  - Gait disturbance [Unknown]
  - Oedema peripheral [Unknown]
  - Illness [Unknown]
  - COVID-19 [Unknown]

NARRATIVE: CASE EVENT DATE: 20221002
